FAERS Safety Report 6016157-5 (Version None)
Quarter: 2008Q4

REPORT INFORMATION
  Report Type: 
  Country: None (occurrence: None)
  Receive Date: 20081222
  Receipt Date: 20081215
  Transmission Date: 20090506
  Serious: Yes (Hospitalization, Other)
  Sender: FDA-Public Use
  Company Number: US-ELI_LILLY_AND_COMPANY-US200812003930

PATIENT
  Age: 38 Year
  Sex: Male
  Weight: 84.807 kg

DRUGS (2)
  1. ALIMTA [Suspect]
     Indication: LUNG NEOPLASM MALIGNANT
     Dosage: 600 MG/M2, UNK
     Dates: start: 20080101
  2. VITAMINS NOS [Concomitant]
     Indication: VITAMIN SUPPLEMENTATION

REACTIONS (3)
  - EYE SWELLING [None]
  - HYPERSENSITIVITY [None]
  - OCULAR HYPERAEMIA [None]
